FAERS Safety Report 4377599-7 (Version None)
Quarter: 2004Q2

REPORT INFORMATION
  Report Type: 
  Country: None (occurrence: None)
  Receive Date: 20040615
  Receipt Date: 20040611
  Transmission Date: 20050107
  Serious: Yes (Hospitalization)
  Sender: FDA-Public Use
  Company Number: US-GLAXOSMITHKLINE-A0514317A

PATIENT
  Age: 69 Year
  Sex: Female

DRUGS (3)
  1. TRIFLUOPERAZINE HCL [Suspect]
     Indication: SCHIZOPHRENIA
     Dosage: 1MG PER DAY
     Route: 048
  2. TRILEPTAL [Concomitant]
  3. LEXAPRO [Concomitant]

REACTIONS (1)
  - PSYCHOTIC DISORDER [None]
